FAERS Safety Report 20097092 (Version 1)
Quarter: 2021Q4

REPORT INFORMATION
  Report Type: Spontaneous
  Country: PL (occurrence: PL)
  Receive Date: 20211122
  Receipt Date: 20211122
  Transmission Date: 20220304
  Serious: Yes (Life-Threatening, Hospitalization)
  Sender: FDA-Public Use
  Company Number: PL-ABBOTT-11P-129-0872408-00

PATIENT
  Age: 23 Year
  Sex: Female

DRUGS (13)
  1. CLARITHROMYCIN [Suspect]
     Active Substance: CLARITHROMYCIN
     Indication: Influenza like illness
     Dosage: UNK
  2. CLARITHROMYCIN [Suspect]
     Active Substance: CLARITHROMYCIN
     Indication: Lymphadenopathy
     Dosage: UNK
  3. CLARITHROMYCIN [Suspect]
     Active Substance: CLARITHROMYCIN
     Indication: Gastroenteritis
     Dosage: UNK
  4. CLARITHROMYCIN [Suspect]
     Active Substance: CLARITHROMYCIN
     Indication: Lymph node pain
     Dosage: UNK
     Route: 065
  5. IBUPROFEN [Suspect]
     Active Substance: IBUPROFEN
     Indication: Influenza like illness
     Dosage: UNK
  6. IBUPROFEN [Suspect]
     Active Substance: IBUPROFEN
     Indication: Gastroenteritis
     Dosage: UNK
  7. IBUPROFEN [Suspect]
     Active Substance: IBUPROFEN
     Indication: Lymphadenopathy
     Dosage: UNK
  8. IBUPROFEN [Suspect]
     Active Substance: IBUPROFEN
     Indication: Lymph node pain
     Dosage: UNK
  9. ACETAMINOPHEN [Suspect]
     Active Substance: ACETAMINOPHEN
     Indication: Influenza like illness
     Dosage: UNK
  10. ACETAMINOPHEN [Suspect]
     Active Substance: ACETAMINOPHEN
     Indication: Lymphadenopathy
     Dosage: UNK
  11. ACETAMINOPHEN [Suspect]
     Active Substance: ACETAMINOPHEN
     Indication: Gastroenteritis
     Dosage: UNK
  12. ACETAMINOPHEN [Suspect]
     Active Substance: ACETAMINOPHEN
     Indication: Lymph node pain
     Dosage: UNK
  13. MESALAMINE [Concomitant]
     Active Substance: MESALAMINE
     Indication: Gastrointestinal haemorrhage
     Dosage: UNK

REACTIONS (59)
  - Prothrombin time prolonged [Recovering/Resolving]
  - Angular cheilitis [Recovering/Resolving]
  - Renal function test abnormal [Recovering/Resolving]
  - Blood bilirubin increased [Recovering/Resolving]
  - Blood pressure decreased [Recovering/Resolving]
  - Purpura [Recovering/Resolving]
  - Skin lesion [Recovering/Resolving]
  - Ammonia increased [Recovering/Resolving]
  - Yellow skin [Recovering/Resolving]
  - Multiple organ dysfunction syndrome [Recovering/Resolving]
  - Hepatosplenomegaly [Recovering/Resolving]
  - Coagulopathy [Recovering/Resolving]
  - Skin exfoliation [Recovering/Resolving]
  - Petechiae [Recovering/Resolving]
  - Ocular icterus [Recovering/Resolving]
  - Aspartate aminotransferase increased [Recovering/Resolving]
  - Haemorrhagic diathesis [Recovering/Resolving]
  - Blood creatinine increased [Recovering/Resolving]
  - Lymphadenopathy [Recovering/Resolving]
  - Transfusion-related acute lung injury [Recovering/Resolving]
  - International normalised ratio increased [Recovering/Resolving]
  - Extravasation [Recovering/Resolving]
  - Platelet count decreased [Recovering/Resolving]
  - Respiratory failure [Recovering/Resolving]
  - C-reactive protein increased [Recovering/Resolving]
  - Pulmonary oedema [Recovering/Resolving]
  - Haemoglobin decreased [Recovering/Resolving]
  - Rash erythematous [Recovering/Resolving]
  - Encephalopathy [Recovering/Resolving]
  - Acute hepatic failure [Recovering/Resolving]
  - Rash [Recovering/Resolving]
  - Dermatitis exfoliative generalised [Recovering/Resolving]
  - Pneumonia [Recovering/Resolving]
  - Jaundice [Recovering/Resolving]
  - Protein total increased [Recovering/Resolving]
  - Oral disorder [Recovering/Resolving]
  - Alanine aminotransferase increased [Recovering/Resolving]
  - Blood fibrinogen decreased [Recovering/Resolving]
  - Blood bicarbonate increased [Recovering/Resolving]
  - Loss of consciousness [Recovering/Resolving]
  - Generalised oedema [Recovering/Resolving]
  - Anaemia [Recovering/Resolving]
  - Pleural effusion [Recovering/Resolving]
  - Purpura [Recovering/Resolving]
  - Rash macular [Recovering/Resolving]
  - Coma [Recovering/Resolving]
  - Dermatitis [Recovering/Resolving]
  - Rash erythematous [Recovering/Resolving]
  - PO2 decreased [Recovering/Resolving]
  - Base excess increased [Recovering/Resolving]
  - Blood alkaline phosphatase increased [Recovering/Resolving]
  - Blood cholinesterase increased [Recovering/Resolving]
  - Gamma-glutamyltransferase increased [Recovering/Resolving]
  - Blood lactate dehydrogenase increased [Recovering/Resolving]
  - Blood pH increased [Recovering/Resolving]
  - Pyrexia [Recovering/Resolving]
  - Coating in mouth [Recovering/Resolving]
  - Hypoxia [Recovering/Resolving]
  - Renal impairment [Unknown]
